FAERS Safety Report 5226456-2 (Version None)
Quarter: 2007Q1

REPORT INFORMATION
  Report Type: 
  Country: None (occurrence: None)
  Receive Date: 20070201
  Receipt Date: 20070122
  Transmission Date: 20070707
  Serious: Yes (Other)
  Sender: FDA-Public Use
  Company Number: JP-PFIZER INC-2006076423

PATIENT
  Sex: Female

DRUGS (9)
  1. LIPITOR [Suspect]
     Indication: HYPERLIPIDAEMIA
     Dosage: DAILY DOSE:5MG
     Route: 048
     Dates: start: 20060125, end: 20060424
  2. LANSOPRAZOLE [Concomitant]
     Indication: REFLUX OESOPHAGITIS
     Dosage: DAILY DOSE:30MG
     Route: 048
  3. FUROSEMIDE [Concomitant]
     Route: 048
  4. DIGOXIN [Concomitant]
     Indication: HYPERTENSION
     Dosage: DAILY DOSE:.125MG
     Route: 048
  5. DIGOXIN [Concomitant]
     Indication: CARDIAC FAILURE
  6. TRICHLORMETHIAZIDE [Concomitant]
     Indication: HYPERTENSION
     Dosage: DAILY DOSE:2MG
     Route: 048
     Dates: start: 20061101
  7. TRICHLORMETHIAZIDE [Concomitant]
     Indication: CARDIAC FAILURE
  8. TRIAZOLAM [Concomitant]
     Indication: INSOMNIA
     Dosage: DAILY DOSE:.25MG
     Route: 048
     Dates: start: 20051101
  9. LEVOTHYROXINE SODIUM [Concomitant]
     Indication: HYPOTHYROIDISM
     Dosage: DAILY DOSE:50MCG
     Route: 048

REACTIONS (1)
  - LIVER DISORDER [None]
